FAERS Safety Report 24571183 (Version 1)
Quarter: 2024Q4

REPORT INFORMATION
  Report Type: Spontaneous
  Country: US (occurrence: US)
  Receive Date: 20241101
  Receipt Date: 20241101
  Transmission Date: 20250115
  Serious: No
  Sender: Haleon PLC
  Company Number: US-HALEON-2205842

PATIENT
  Age: 47 Year
  Sex: Female

DRUGS (1)
  1. DEXTROMETHORPHAN HYDROBROMIDE\DOXYLAMINE SUCCINATE [Suspect]
     Active Substance: DEXTROMETHORPHAN HYDROBROMIDE\DOXYLAMINE SUCCINATE
     Indication: Cough
     Dosage: 2 TABLETS EVERY 4/6 HRS. EXPIRATION DATE: 2025-10
     Route: 048
     Dates: start: 20241028, end: 20241030

REACTIONS (1)
  - Drug ineffective [Unknown]
